FAERS Safety Report 9434470 (Version 1)
Quarter: 2013Q3

REPORT INFORMATION
  Report Type: Spontaneous
  Country: US (occurrence: None)
  Receive Date: 20130731
  Receipt Date: 20130731
  Transmission Date: 20140515
  Serious: Yes (Hospitalization)
  Sender: FDA-Public Use
  Company Number: None

PATIENT
  Age: 53 Year
  Sex: Male
  Weight: 98.88 kg

DRUGS (1)
  1. PROTONIX [Suspect]
     Indication: BARRETT^S OESOPHAGUS
     Dosage: 1 TABLET BID ORAL
     Route: 048
     Dates: start: 20121201, end: 20130124

REACTIONS (2)
  - Chest pain [None]
  - Gastritis [None]
